FAERS Safety Report 15017152 (Version 1)
Quarter: 2018Q2

REPORT INFORMATION
  Report Type: Spontaneous
  Country: US (occurrence: US)
  Receive Date: 20180531
  Receipt Date: 20180531
  Transmission Date: 20180711
  Serious: No
  Sender: FDA-Public Use
  Company Number: None

PATIENT
  Age: 67 Year
  Sex: Female
  Weight: 54 kg

DRUGS (1)
  1. LEVOTHYROXINE. [Suspect]
     Active Substance: LEVOTHYROXINE
     Indication: THYROID DISORDER
     Route: 048
     Dates: start: 20180424, end: 20180524

REACTIONS (4)
  - Product solubility abnormal [None]
  - Drug effect decreased [None]
  - Product coating issue [None]
  - Product quality issue [None]

NARRATIVE: CASE EVENT DATE: 20180531
